FAERS Safety Report 9147549 (Version 1)
Quarter: 2013Q1

REPORT INFORMATION
  Report Type: Spontaneous
  Country: FR (occurrence: FR)
  Receive Date: 20130307
  Receipt Date: 20130307
  Transmission Date: 20140127
  Serious: Yes (Hospitalization)
  Sender: FDA-Public Use
  Company Number: FR-VERTEX PHARMACEUTICALS INC.-2013-003146

PATIENT
  Age: 46 Year
  Sex: Male

DRUGS (4)
  1. INCIVO [Suspect]
     Indication: ANTIVIRAL TREATMENT
     Dosage: 750 MG, TID
     Route: 048
     Dates: start: 20130114, end: 20130223
  2. RIBAVIRIN [Suspect]
     Indication: ANTIVIRAL TREATMENT
     Dosage: DOSAGE FORM: TABLETS
     Route: 048
     Dates: start: 20130114, end: 20130223
  3. PEGYLATED INTERFERON [Suspect]
     Indication: ANTIVIRAL TREATMENT
     Dosage: DOSAGE FORM: INJECTION
     Route: 058
     Dates: start: 20130114, end: 20130223
  4. OMEPRAZOLE [Concomitant]
     Indication: GASTROINTESTINAL DISORDER
     Dosage: DOSAGE FORM: TABLETS
     Route: 048
     Dates: start: 20130211

REACTIONS (1)
  - Pancreatitis acute [Recovered/Resolved]
